FAERS Safety Report 24872665 (Version 1)
Quarter: 2025Q1

REPORT INFORMATION
  Report Type: Spontaneous
  Country: CN (occurrence: CN)
  Receive Date: 20250122
  Receipt Date: 20250122
  Transmission Date: 20250409
  Serious: Yes (Life-Threatening, Other)
  Sender: BAXTER
  Company Number: None

PATIENT
  Age: 73 Year
  Sex: Female
  Weight: 50 kg

DRUGS (68)
  1. CLINOMEL [Suspect]
     Active Substance: AMINO ACIDS\DEXTROSE\ELECTROLYTES NOS\SOYBEAN OIL
     Indication: Parenteral nutrition
     Route: 041
     Dates: start: 20241125, end: 20241127
  2. CLINOMEL [Suspect]
     Active Substance: AMINO ACIDS\DEXTROSE\ELECTROLYTES NOS\SOYBEAN OIL
     Indication: Gastrointestinal perforation
  3. CLINOMEL [Suspect]
     Active Substance: AMINO ACIDS\DEXTROSE\ELECTROLYTES NOS\SOYBEAN OIL
     Indication: Peritonitis
  4. CLINOMEL [Suspect]
     Active Substance: AMINO ACIDS\DEXTROSE\ELECTROLYTES NOS\SOYBEAN OIL
     Indication: Septic shock
  5. PANTOPRAZOLE SODIUM [Suspect]
     Active Substance: PANTOPRAZOLE SODIUM
     Indication: Parenteral nutrition
     Route: 042
     Dates: start: 20241124, end: 20241127
  6. PANTOPRAZOLE SODIUM [Suspect]
     Active Substance: PANTOPRAZOLE SODIUM
     Indication: Gastrointestinal perforation
  7. PANTOPRAZOLE SODIUM [Suspect]
     Active Substance: PANTOPRAZOLE SODIUM
     Indication: Peritonitis
  8. PANTOPRAZOLE SODIUM [Suspect]
     Active Substance: PANTOPRAZOLE SODIUM
     Indication: Septic shock
  9. SODIUM CHLORIDE [Suspect]
     Active Substance: SODIUM CHLORIDE
     Indication: Medication dilution
     Route: 042
     Dates: start: 20241124, end: 20241127
  10. SODIUM CHLORIDE [Suspect]
     Active Substance: SODIUM CHLORIDE
     Route: 042
     Dates: start: 20241124, end: 20241127
  11. SODIUM CHLORIDE [Suspect]
     Active Substance: SODIUM CHLORIDE
     Route: 042
     Dates: start: 20241127, end: 20241201
  12. SODIUM CHLORIDE [Suspect]
     Active Substance: SODIUM CHLORIDE
     Route: 042
     Dates: start: 20241125, end: 20241127
  13. SODIUM CHLORIDE [Suspect]
     Active Substance: SODIUM CHLORIDE
     Route: 042
     Dates: start: 20241125, end: 20241126
  14. SODIUM CHLORIDE [Suspect]
     Active Substance: SODIUM CHLORIDE
     Route: 042
     Dates: start: 20241127, end: 20241209
  15. SODIUM CHLORIDE [Suspect]
     Active Substance: SODIUM CHLORIDE
     Route: 042
     Dates: start: 20241127, end: 20241202
  16. CEFOPERAZONE\SULBACTAM [Suspect]
     Active Substance: CEFOPERAZONE\SULBACTAM
     Indication: Parenteral nutrition
     Route: 042
     Dates: start: 20241124, end: 20241127
  17. CEFOPERAZONE\SULBACTAM [Suspect]
     Active Substance: CEFOPERAZONE\SULBACTAM
     Indication: Gastrointestinal perforation
     Route: 042
     Dates: start: 20241127, end: 20241201
  18. CEFOPERAZONE\SULBACTAM [Suspect]
     Active Substance: CEFOPERAZONE\SULBACTAM
     Indication: Peritonitis
  19. CEFOPERAZONE\SULBACTAM [Suspect]
     Active Substance: CEFOPERAZONE\SULBACTAM
     Indication: Septic shock
  20. LINEZOLID [Suspect]
     Active Substance: LINEZOLID
     Indication: Parenteral nutrition
     Route: 042
     Dates: start: 20241124, end: 20241127
  21. LINEZOLID [Suspect]
     Active Substance: LINEZOLID
     Indication: Gastrointestinal perforation
  22. LINEZOLID [Suspect]
     Active Substance: LINEZOLID
     Indication: Peritonitis
  23. LINEZOLID [Suspect]
     Active Substance: LINEZOLID
     Indication: Septic shock
  24. AMBROXOL [Suspect]
     Active Substance: AMBROXOL
     Indication: Parenteral nutrition
     Route: 042
     Dates: start: 20241124, end: 20241205
  25. AMBROXOL [Suspect]
     Active Substance: AMBROXOL
     Indication: Gastrointestinal perforation
  26. AMBROXOL [Suspect]
     Active Substance: AMBROXOL
     Indication: Peritonitis
  27. AMBROXOL [Suspect]
     Active Substance: AMBROXOL
     Indication: Septic shock
  28. OXYGEN [Suspect]
     Active Substance: OXYGEN
     Indication: Parenteral nutrition
     Route: 045
     Dates: start: 20241125
  29. OXYGEN [Suspect]
     Active Substance: OXYGEN
     Indication: Gastrointestinal perforation
  30. OXYGEN [Suspect]
     Active Substance: OXYGEN
     Indication: Peritonitis
  31. OXYGEN [Suspect]
     Active Substance: OXYGEN
     Indication: Septic shock
  32. ELECTROLYTES NOS\MINERALS [Suspect]
     Active Substance: ELECTROLYTES NOS\MINERALS
     Indication: Parenteral nutrition
     Route: 065
     Dates: start: 20241125, end: 20241127
  33. ELECTROLYTES NOS\MINERALS [Suspect]
     Active Substance: ELECTROLYTES NOS\MINERALS
     Indication: Gastrointestinal perforation
  34. ELECTROLYTES NOS\MINERALS [Suspect]
     Active Substance: ELECTROLYTES NOS\MINERALS
     Indication: Peritonitis
  35. ELECTROLYTES NOS\MINERALS [Suspect]
     Active Substance: ELECTROLYTES NOS\MINERALS
     Indication: Septic shock
  36. ERGOCALCIFEROL\PHYTONADIONE\RETINOL\TOCOPHEROL [Suspect]
     Active Substance: ERGOCALCIFEROL\PHYTONADIONE\RETINOL\TOCOPHEROL
     Indication: Parenteral nutrition
     Route: 042
     Dates: start: 20241125, end: 20241127
  37. ERGOCALCIFEROL\PHYTONADIONE\RETINOL\TOCOPHEROL [Suspect]
     Active Substance: ERGOCALCIFEROL\PHYTONADIONE\RETINOL\TOCOPHEROL
     Indication: Gastrointestinal perforation
     Route: 042
     Dates: start: 20241127, end: 20241128
  38. ERGOCALCIFEROL\PHYTONADIONE\RETINOL\TOCOPHEROL [Suspect]
     Active Substance: ERGOCALCIFEROL\PHYTONADIONE\RETINOL\TOCOPHEROL
     Indication: Peritonitis
  39. ERGOCALCIFEROL\PHYTONADIONE\RETINOL\TOCOPHEROL [Suspect]
     Active Substance: ERGOCALCIFEROL\PHYTONADIONE\RETINOL\TOCOPHEROL
     Indication: Septic shock
  40. HERBALS [Suspect]
     Active Substance: HERBALS
     Indication: Parenteral nutrition
     Route: 042
     Dates: start: 20241125, end: 20241127
  41. HERBALS [Suspect]
     Active Substance: HERBALS
     Indication: Gastrointestinal perforation
  42. HERBALS [Suspect]
     Active Substance: HERBALS
     Indication: Peritonitis
  43. HERBALS [Suspect]
     Active Substance: HERBALS
     Indication: Septic shock
  44. ENOXAPARIN SODIUM [Suspect]
     Active Substance: ENOXAPARIN SODIUM
     Indication: Parenteral nutrition
     Route: 058
     Dates: start: 20241125, end: 20241127
  45. ENOXAPARIN SODIUM [Suspect]
     Active Substance: ENOXAPARIN SODIUM
     Indication: Gastrointestinal perforation
     Route: 058
     Dates: start: 20241128, end: 20241209
  46. ENOXAPARIN SODIUM [Suspect]
     Active Substance: ENOXAPARIN SODIUM
     Indication: Peritonitis
  47. ENOXAPARIN SODIUM [Suspect]
     Active Substance: ENOXAPARIN SODIUM
     Indication: Septic shock
  48. INSULIN HUMAN [Suspect]
     Active Substance: INSULIN HUMAN
     Indication: Parenteral nutrition
     Route: 042
     Dates: start: 20241125, end: 20241126
  49. INSULIN HUMAN [Suspect]
     Active Substance: INSULIN HUMAN
     Indication: Gastrointestinal perforation
  50. INSULIN HUMAN [Suspect]
     Active Substance: INSULIN HUMAN
     Indication: Peritonitis
  51. INSULIN HUMAN [Suspect]
     Active Substance: INSULIN HUMAN
     Indication: Septic shock
  52. POTASSIUM CHLORIDE [Suspect]
     Active Substance: POTASSIUM CHLORIDE
     Indication: Parenteral nutrition
     Route: 042
     Dates: start: 20241127, end: 20241209
  53. POTASSIUM CHLORIDE [Suspect]
     Active Substance: POTASSIUM CHLORIDE
     Indication: Gastrointestinal perforation
  54. POTASSIUM CHLORIDE [Suspect]
     Active Substance: POTASSIUM CHLORIDE
     Indication: Peritonitis
  55. POTASSIUM CHLORIDE [Suspect]
     Active Substance: POTASSIUM CHLORIDE
     Indication: Septic shock
  56. DEXTROSE [Suspect]
     Active Substance: DEXTROSE MONOHYDRATE
     Indication: Medication dilution
     Route: 042
     Dates: start: 20241127, end: 20241209
  57. VITAMIN C [Suspect]
     Active Substance: ASCORBIC ACID
     Indication: Parenteral nutrition
     Route: 042
     Dates: start: 20241127, end: 20241209
  58. VITAMIN C [Suspect]
     Active Substance: ASCORBIC ACID
     Indication: Gastrointestinal perforation
  59. VITAMIN C [Suspect]
     Active Substance: ASCORBIC ACID
     Indication: Peritonitis
  60. VITAMIN C [Suspect]
     Active Substance: ASCORBIC ACID
     Indication: Septic shock
  61. ILAPRAZOLE [Suspect]
     Active Substance: ILAPRAZOLE
     Indication: Parenteral nutrition
     Route: 042
     Dates: start: 20241127, end: 20241209
  62. ILAPRAZOLE [Suspect]
     Active Substance: ILAPRAZOLE
     Indication: Gastrointestinal perforation
  63. ILAPRAZOLE [Suspect]
     Active Substance: ILAPRAZOLE
     Indication: Peritonitis
  64. ILAPRAZOLE [Suspect]
     Active Substance: ILAPRAZOLE
     Indication: Septic shock
  65. DEXLANSOPRAZOLE [Suspect]
     Active Substance: DEXLANSOPRAZOLE
     Indication: Parenteral nutrition
     Route: 042
     Dates: start: 20241127, end: 20241202
  66. DEXLANSOPRAZOLE [Suspect]
     Active Substance: DEXLANSOPRAZOLE
     Indication: Gastrointestinal perforation
  67. DEXLANSOPRAZOLE [Suspect]
     Active Substance: DEXLANSOPRAZOLE
     Indication: Peritonitis
  68. DEXLANSOPRAZOLE [Suspect]
     Active Substance: DEXLANSOPRAZOLE
     Indication: Septic shock

REACTIONS (3)
  - Acute coronary syndrome [Recovering/Resolving]
  - Chest discomfort [Unknown]
  - Dyspnoea [Unknown]

NARRATIVE: CASE EVENT DATE: 20241128
